FAERS Safety Report 4801571-3 (Version None)
Quarter: 2005Q4

REPORT INFORMATION
  Report Type: 
  Country: None (occurrence: None)
  Receive Date: 20051012
  Receipt Date: 20050929
  Transmission Date: 20060501
  Serious: Yes (Death)
  Sender: FDA-Public Use
  Company Number: US016126

PATIENT
  Age: 84 Year
  Sex: Female

DRUGS (2)
  1. TRISENOX [Suspect]
     Dosage: 19 MG ONCE INTRAVENOUS DRIP
     Route: 041
     Dates: start: 20050324, end: 20050324
  2. CIPRO [Suspect]

REACTIONS (4)
  - DIALYSIS [None]
  - LOSS OF CONSCIOUSNESS [None]
  - PULSE ABSENT [None]
  - RENAL FAILURE ACUTE [None]
